FAERS Safety Report 8521652-0 (Version None)
Quarter: 2012Q3

REPORT INFORMATION
  Report Type: 
  Country: None (occurrence: None)
  Receive Date: 20120719
  Receipt Date: 20120717
  Transmission Date: 20120928
  Serious: Yes (Other)
  Sender: FDA-Public Use
  Company Number: PHHY2012AR061483

PATIENT
  Sex: Female

DRUGS (2)
  1. DIOVAN [Suspect]
     Dosage: 1 DF, UNK
  2. DIOVAN [Suspect]
     Indication: HYPERTENSION
     Dosage: 80 MG, DAILY
     Dates: start: 20100101

REACTIONS (5)
  - BLOOD PRESSURE DECREASED [None]
  - MALAISE [None]
  - GASTROINTESTINAL PAIN [None]
  - ACCIDENT [None]
  - GASTROINTESTINAL DISORDER [None]
